FAERS Safety Report 22115928 (Version 1)
Quarter: 2023Q1

REPORT INFORMATION
  Report Type: Spontaneous
  Country: US (occurrence: US)
  Receive Date: 20230320
  Receipt Date: 20230320
  Transmission Date: 20230418
  Serious: No
  Sender: FDA-Public Use
  Company Number: US-RECORDATI RARE DISEASE INC.-2022002662

PATIENT
  Sex: Female
  Weight: 3.2 kg

DRUGS (1)
  1. CHEMET [Suspect]
     Active Substance: SUCCIMER
     Indication: Blood lead increased
     Dosage: 100 MILLIGRAM
     Dates: start: 20220608, end: 20220628

REACTIONS (2)
  - Off label use [Recovered/Resolved]
  - Product use complaint [Recovered/Resolved]
